FAERS Safety Report 15394075 (Version 1)
Quarter: 2018Q3

REPORT INFORMATION
  Report Type: Report from Study
  Country: None (occurrence: BR)
  Receive Date: 20180917
  Receipt Date: 20180917
  Transmission Date: 20181010
  Serious: Yes (Other)
  Sender: FDA-Public Use
  Company Number: BR-ABBVIE-15K-020-1391874-00

PATIENT
  Age: 29 Year
  Sex: Female
  Weight: 72 kg

DRUGS (4)
  1. HUMIRA [Suspect]
     Active Substance: ADALIMUMAB
     Dosage: LOADING DOSE ? WEEK 1
     Route: 058
     Dates: start: 2015, end: 2015
  2. HUMIRA [Suspect]
     Active Substance: ADALIMUMAB
     Dosage: MAINTENANCE DOSE
     Route: 058
     Dates: start: 2015
  3. AZATHIOPRINE. [Concomitant]
     Active Substance: AZATHIOPRINE
     Indication: CROHN^S DISEASE
     Route: 048
     Dates: start: 2013
  4. HUMIRA [Suspect]
     Active Substance: ADALIMUMAB
     Indication: CROHN^S DISEASE
     Dosage: LOADING DOSE ? WEEK 0
     Route: 058
     Dates: start: 20150423, end: 20150423

REACTIONS (21)
  - Asthmatic crisis [Recovered/Resolved]
  - Cough [Not Recovered/Not Resolved]
  - Injection site erythema [Unknown]
  - Sinusitis [Unknown]
  - Injection site pain [Unknown]
  - Dyspnoea [Not Recovered/Not Resolved]
  - Listless [Not Recovered/Not Resolved]
  - Rhinitis [Recovered/Resolved]
  - Pyrexia [Recovering/Resolving]
  - Drug hypersensitivity [Not Recovered/Not Resolved]
  - Pharyngeal haemorrhage [Recovering/Resolving]
  - Nasal dryness [Recovered/Resolved]
  - Fatigue [Not Recovered/Not Resolved]
  - Upper-airway cough syndrome [Recovering/Resolving]
  - Hyperhidrosis [Recovering/Resolving]
  - Rhinitis allergic [Not Recovered/Not Resolved]
  - Dry throat [Not Recovered/Not Resolved]
  - Pharyngitis [Recovering/Resolving]
  - Rhinitis [Recovered/Resolved]
  - Hypersensitivity [Unknown]
  - Hypersensitivity [Recovered/Resolved]

NARRATIVE: CASE EVENT DATE: 2015
